FAERS Safety Report 5905206-8 (Version None)
Quarter: 2008Q3

REPORT INFORMATION
  Report Type: 
  Country: None (occurrence: None)
  Receive Date: 20080909
  Receipt Date: 20071126
  Transmission Date: 20090109
  Serious: Yes (Other)
  Sender: FDA-Public Use
  Company Number: 163-20785-07100693

PATIENT
  Age: 64 Year
  Sex: Male

DRUGS (4)
  1. THALOMID [Suspect]
     Indication: MULTIPLE MYELOMA
     Dosage: 200 MG, 4 IN 1 D, ORAL ; 50-100MG, DAILY, ORAL ; 200 MG, 4 IN 1 D, ORAL ; 50 MG, 1 IN 1 D, ORAL
     Route: 048
     Dates: start: 20050722, end: 20050801
  2. THALOMID [Suspect]
     Indication: MULTIPLE MYELOMA
     Dosage: 200 MG, 4 IN 1 D, ORAL ; 50-100MG, DAILY, ORAL ; 200 MG, 4 IN 1 D, ORAL ; 50 MG, 1 IN 1 D, ORAL
     Route: 048
     Dates: start: 20050818, end: 20051201
  3. THALOMID [Suspect]
     Indication: MULTIPLE MYELOMA
     Dosage: 200 MG, 4 IN 1 D, ORAL ; 50-100MG, DAILY, ORAL ; 200 MG, 4 IN 1 D, ORAL ; 50 MG, 1 IN 1 D, ORAL
     Route: 048
     Dates: start: 20060302, end: 20060101
  4. THALOMID [Suspect]
     Indication: MULTIPLE MYELOMA
     Dosage: 200 MG, 4 IN 1 D, ORAL ; 50-100MG, DAILY, ORAL ; 200 MG, 4 IN 1 D, ORAL ; 50 MG, 1 IN 1 D, ORAL
     Route: 048
     Dates: start: 20060628, end: 20070223

REACTIONS (4)
  - ASTHENIA [None]
  - DEEP VEIN THROMBOSIS [None]
  - NEUROPATHY PERIPHERAL [None]
  - SKIN LESION [None]
